FAERS Safety Report 14409569 (Version 1)
Quarter: 2018Q1

REPORT INFORMATION
  Report Type: Spontaneous
  Country: JP (occurrence: JP)
  Receive Date: 20180119
  Receipt Date: 20180119
  Transmission Date: 20180509
  Serious: Yes (Other)
  Sender: FDA-Public Use
  Company Number: JP-ROCHE-2053268

PATIENT
  Age: 63 Year
  Sex: Male

DRUGS (24)
  1. LUCENTIS [Suspect]
     Active Substance: RANIBIZUMAB
     Route: 031
  2. LUCENTIS [Suspect]
     Active Substance: RANIBIZUMAB
     Route: 031
     Dates: start: 20120528
  3. AFLIBERCEPT [Concomitant]
     Active Substance: AFLIBERCEPT
     Dosage: ONCE EVERY 2-3 MONTHS, UNK
     Route: 065
  4. LUCENTIS [Suspect]
     Active Substance: RANIBIZUMAB
     Route: 031
  5. LUCENTIS [Suspect]
     Active Substance: RANIBIZUMAB
     Route: 031
     Dates: start: 20121222
  6. LUCENTIS [Suspect]
     Active Substance: RANIBIZUMAB
     Route: 031
     Dates: start: 20110425
  7. LUCENTIS [Suspect]
     Active Substance: RANIBIZUMAB
     Route: 031
  8. AFLIBERCEPT [Concomitant]
     Active Substance: AFLIBERCEPT
     Indication: POLYPOIDAL CHOROIDAL VASCULOPATHY
     Dosage: ONCE EVERY 2-3 MONTHS, UNK
     Route: 065
     Dates: start: 20130117
  9. AFLIBERCEPT [Concomitant]
     Active Substance: AFLIBERCEPT
     Dosage: ONCE EVERY 2-3 MONTHS, UNK
     Route: 065
  10. AFLIBERCEPT [Concomitant]
     Active Substance: AFLIBERCEPT
     Dosage: ONCE EVERY 2-3 MONTHS, UNK
     Route: 065
  11. AFLIBERCEPT [Concomitant]
     Active Substance: AFLIBERCEPT
     Dosage: ONCE EVERY 2-3 MONTHS, UNK
     Route: 065
  12. AFLIBERCEPT [Concomitant]
     Active Substance: AFLIBERCEPT
     Dosage: ONCE EVERY 2-3 MONTHS, UNK
     Route: 065
  13. AFLIBERCEPT [Concomitant]
     Active Substance: AFLIBERCEPT
     Dosage: ONCE EVERY 2-3 MONTHS, UNK
     Route: 065
  14. LUCENTIS [Suspect]
     Active Substance: RANIBIZUMAB
     Indication: POLYPOIDAL CHOROIDAL VASCULOPATHY
     Dosage: 0.05 ML, UNK
     Route: 031
     Dates: start: 20110123
  15. AFLIBERCEPT [Concomitant]
     Active Substance: AFLIBERCEPT
     Dosage: ONCE EVERY 2-3 MONTHS, UNK
     Route: 065
  16. AFLIBERCEPT [Concomitant]
     Active Substance: AFLIBERCEPT
     Dosage: ONCE EVERY 2-3 MONTHS, UNK
     Route: 065
  17. AFLIBERCEPT [Concomitant]
     Active Substance: AFLIBERCEPT
     Dosage: ONCE EVERY 2-3 MONTHS, UNK
     Route: 065
  18. LUCENTIS [Suspect]
     Active Substance: RANIBIZUMAB
     Route: 031
  19. LUCENTIS [Suspect]
     Active Substance: RANIBIZUMAB
     Route: 031
     Dates: start: 20150311
  20. AFLIBERCEPT [Concomitant]
     Active Substance: AFLIBERCEPT
     Dosage: ONCE EVERY 2-3 MONTHS, UNK
     Route: 065
     Dates: start: 20150119
  21. LUCENTIS [Suspect]
     Active Substance: RANIBIZUMAB
     Route: 031
  22. AFLIBERCEPT [Concomitant]
     Active Substance: AFLIBERCEPT
     Dosage: ONCE EVERY 2-3 MONTHS, UNK
     Route: 065
  23. AFLIBERCEPT [Concomitant]
     Active Substance: AFLIBERCEPT
     Dosage: ONCE EVERY 2-3 MONTHS, UNK
     Route: 065
  24. AFLIBERCEPT [Concomitant]
     Active Substance: AFLIBERCEPT
     Dosage: ONCE EVERY 2-3 MONTHS, UNK
     Route: 065

REACTIONS (1)
  - Polypoidal choroidal vasculopathy [Unknown]
